FAERS Safety Report 17930614 (Version 1)
Quarter: 2020Q2

REPORT INFORMATION
  Report Type: Spontaneous
  Country: DE (occurrence: DE)
  Receive Date: 20200623
  Receipt Date: 20200623
  Transmission Date: 20200714
  Serious: Yes (Hospitalization, Other)
  Sender: FDA-Public Use
  Company Number: DE-TEVA-2020-DE-1789894

PATIENT
  Age: 83 Year
  Sex: Female

DRUGS (7)
  1. METOPROLOL. [Suspect]
     Active Substance: METOPROLOL
     Dosage: 47.5 MG, 0.5-0-0.5-0,
     Route: 048
  2. NITRENDIPIN [Concomitant]
     Active Substance: NITRENDIPINE
     Dosage: 20 MILLIGRAM DAILY;  1-0-1-0,
     Route: 048
  3. EDOXABAN [Concomitant]
     Active Substance: EDOXABAN TOSYLATE
     Dosage: 60 MILLIGRAM DAILY; , 0-1-0-0,
     Route: 048
  4. METAMIZOL [Concomitant]
     Active Substance: METAMIZOLE SODIUM
     Dosage: 2000 MILLIGRAM DAILY; 1-1-1-1,
     Route: 048
  5. DIGITOXIN [Suspect]
     Active Substance: DIGITOXIN
     Dosage: .07 MILLIGRAM DAILY; 1-0-0-0,
     Route: 048
  6. TELMISARTAN. [Concomitant]
     Active Substance: TELMISARTAN
     Dosage: 20 MILLIGRAM DAILY; 0-1-0-0,
  7. TORASEMID [Concomitant]
     Active Substance: TORSEMIDE
     Dosage: 10 MILLIGRAM DAILY; , 1-0-0-0,
     Route: 048

REACTIONS (4)
  - Arrhythmia [Unknown]
  - Hypertension [Unknown]
  - Bradycardia [Unknown]
  - Angina pectoris [Unknown]
